FAERS Safety Report 10802684 (Version 7)
Quarter: 2015Q2

REPORT INFORMATION
  Report Type: Report from Study
  Country: GB (occurrence: GB)
  Receive Date: 20150217
  Receipt Date: 20150505
  Transmission Date: 20150821
  Serious: Yes (Hospitalization, Other)
  Sender: FDA-Public Use
  Company Number: PHFR2015GB001539

PATIENT
  Age: 36 Year
  Sex: Male

DRUGS (5)
  1. OLANZAPINE. [Concomitant]
     Active Substance: OLANZAPINE
     Dosage: UNK
     Route: 065
     Dates: start: 20150302
  2. CLOZARIL [Suspect]
     Active Substance: CLOZAPINE
     Indication: SCHIZOPHRENIA
     Dosage: OT, QD
     Route: 048
     Dates: start: 20031117
  3. OLANZAPINE. [Concomitant]
     Active Substance: OLANZAPINE
     Indication: SCHIZOPHRENIA
     Dosage: 10 MG, AT NIGHT
     Route: 065
     Dates: start: 20150219
  4. CLOZARIL [Suspect]
     Active Substance: CLOZAPINE
     Dosage: 550 MG, QD (AT NIGHT)
     Route: 048
     Dates: start: 20150212
  5. CLOZARIL [Suspect]
     Active Substance: CLOZAPINE
     Dosage: UNK
     Route: 048
     Dates: start: 20120209, end: 20150210

REACTIONS (11)
  - Acidosis [Unknown]
  - Chromaturia [Unknown]
  - Acute kidney injury [Unknown]
  - Circulatory collapse [Recovered/Resolved]
  - Rhabdomyolysis [Recovered/Resolved]
  - Chronic kidney disease [Recovered/Resolved]
  - Urine output decreased [Recovered/Resolved]
  - Hepatic failure [Recovered/Resolved]
  - Muscle spasms [Unknown]
  - Polyuria [Unknown]
  - Asthenia [Unknown]

NARRATIVE: CASE EVENT DATE: 20150207
